FAERS Safety Report 6711318-1 (Version None)
Quarter: 2010Q2

REPORT INFORMATION
  Report Type: 
  Country: None (occurrence: None)
  Receive Date: 20100505
  Receipt Date: 20100426
  Transmission Date: 20101027
  Serious: Yes (Hospitalization)
  Sender: FDA-Public Use
  Company Number: US-BAYER-201015721NA

PATIENT
  Age: 62 Year
  Sex: Male
  Weight: 76 kg

DRUGS (7)
  1. SORAFENIB [Suspect]
     Indication: RENAL CANCER METASTATIC
     Dosage: TOTAL DAILY DOSE: 800 MG  UNIT DOSE: 200 MG
     Route: 048
     Dates: start: 20091027, end: 20100301
  2. SORAFENIB [Suspect]
  3. VORINOSTAT [Suspect]
     Indication: RENAL CANCER METASTATIC
     Dosage: TOTAL DAILY DOSE: 200 MG
     Route: 048
     Dates: start: 20091027, end: 20100221
  4. ENALAPRIL MALEATE [Concomitant]
  5. PREDNISONE [Concomitant]
  6. LORAZEPAM [Concomitant]
  7. VARENICLINE [Concomitant]

REACTIONS (1)
  - ABDOMINAL HERNIA [None]
